FAERS Safety Report 7992484 (Version 2)
Quarter: 2012Q4

REPORT INFORMATION
  Report Type: 
  Country: CA (occurrence: CA)
  Receive Date: 20110615
  Receipt Date: 20121106
  Transmission Date: 20130627
  Serious: Yes (Death, Hospitalization)
  Sender: FDA-Public Use
  Company Number: PHHY2007CA00905

PATIENT
  Sex: Female

DRUGS (1)
  1. SANDOSTATIN [Suspect]
     Dosage: 20 mg, QMO
     Route: 058

REACTIONS (7)
  - Death [Fatal]
  - Ileus [Unknown]
  - Intestinal stenosis [Unknown]
  - Abdominal pain [Unknown]
  - Vomiting [Unknown]
  - Malaise [Unknown]
  - Decreased appetite [Unknown]
